FAERS Safety Report 5455103-X (Version None)
Quarter: 2007Q3

REPORT INFORMATION
  Report Type: 
  Country: None (occurrence: None)
  Receive Date: 20070913
  Receipt Date: 20070830
  Transmission Date: 20080115
  Serious: Yes (Other)
  Sender: FDA-Public Use
  Company Number: 100#03#2007-03343

PATIENT
  Age: 62 Year
  Sex: Female

DRUGS (4)
  1. CIPROFLOXACIN [Suspect]
     Indication: SINUSITIS
     Dosage: 500MG ORAL
     Route: 048
     Dates: start: 20070616, end: 20070622
  2. FOSAMAX (ALENDRONATE SODIUM) (ALENDRONIC ACID) [Concomitant]
  3. THYROXINE (LEVOTHYROXINE SODIUM) (THYROXINE) [Concomitant]
  4. CALCIT D (CALCIUM CARBONATE, COLECALCIFEROL) [Concomitant]

REACTIONS (4)
  - INFLAMMATION [None]
  - OEDEMA MOUTH [None]
  - PAIN [None]
  - THROAT IRRITATION [None]
